FAERS Safety Report 16193212 (Version 1)
Quarter: 2019Q2

REPORT INFORMATION
  Report Type: Spontaneous
  Country: US (occurrence: US)
  Receive Date: 20190413
  Receipt Date: 20190413
  Transmission Date: 20190711
  Serious: Yes (Other)
  Sender: FDA-Public Use
  Company Number: US-009507513-1904USA004799

PATIENT
  Sex: Female

DRUGS (1)
  1. NEXPLANON [Suspect]
     Active Substance: ETONOGESTREL
     Dosage: IMPLANT,  INSERTED FOR 3 TO 3.5 YEARS
     Route: 059

REACTIONS (5)
  - Complication of device removal [Not Recovered/Not Resolved]
  - Incorrect product administration duration [Unknown]
  - Device deployment issue [Not Recovered/Not Resolved]
  - Complication associated with device [Not Recovered/Not Resolved]
  - Device dislocation [Not Recovered/Not Resolved]
